FAERS Safety Report 4829519-6 (Version None)
Quarter: 2005Q4

REPORT INFORMATION
  Report Type: 
  Country: None (occurrence: None)
  Receive Date: 20051116
  Receipt Date: 20051109
  Transmission Date: 20060501
  Serious: Yes (Other)
  Sender: FDA-Public Use
  Company Number: US-SANOFI-SYNTHELABO-A03200503628

PATIENT
  Age: 50 Year
  Sex: Male

DRUGS (8)
  1. ELOXATIN [Suspect]
     Indication: DRUG USE FOR UNKNOWN INDICATION
     Dosage: UNK
     Route: 042
     Dates: start: 20050101, end: 20050101
  2. AVASTIN [Suspect]
     Indication: DRUG USE FOR UNKNOWN INDICATION
     Dosage: UNK
     Route: 042
  3. FLUOROURACIL [Concomitant]
     Dosage: UNK
     Route: 042
  4. LEUCOVORIN [Concomitant]
     Dosage: UNK
     Route: 042
  5. KYTRIL [Concomitant]
     Dosage: UNK
     Route: 042
  6. DECADRON [Concomitant]
     Dosage: UNK
     Route: 042
  7. CALCIUM GLUCONATE [Concomitant]
     Dosage: UNK
     Route: 042
  8. MAGNESIUM [Concomitant]
     Dosage: UNK
     Route: 042

REACTIONS (2)
  - BONE MARROW FAILURE [None]
  - THROMBOTIC THROMBOCYTOPENIC PURPURA [None]
